FAERS Safety Report 6780724-1 (Version None)
Quarter: 2010Q2

REPORT INFORMATION
  Report Type: 
  Country: None (occurrence: None)
  Receive Date: 20100621
  Receipt Date: 20100609
  Transmission Date: 20101027
  Serious: No
  Sender: FDA-Public Use
  Company Number: 2010BI004537

PATIENT
  Age: 50 Year
  Sex: Female

DRUGS (1)
  1. TYSABRI [Suspect]
     Indication: MULTIPLE SCLEROSIS
     Route: 042
     Dates: start: 20081002

REACTIONS (6)
  - BRONCHITIS [None]
  - COGNITIVE DISORDER [None]
  - CONTUSION [None]
  - PAIN IN EXTREMITY [None]
  - PYREXIA [None]
  - VISION BLURRED [None]
